FAERS Safety Report 22254308 (Version 1)
Quarter: 2023Q2

REPORT INFORMATION
  Report Type: Spontaneous
  Country: US (occurrence: None)
  Receive Date: 20230425
  Receipt Date: 20230425
  Transmission Date: 20230722
  Serious: Yes (Other)
  Sender: FDA-Public Use
  Company Number: None

PATIENT
  Age: 77 Year
  Sex: Male
  Weight: 105.75 kg

DRUGS (6)
  1. JARDIANCE [Suspect]
     Active Substance: EMPAGLIFLOZIN
     Indication: Cardiovascular event prophylaxis
     Dosage: OTHER QUANTITY : .50 TABLET(S);?FREQUENCY : DAILY;?
     Route: 048
     Dates: start: 20230328, end: 20230422
  2. INSULIN NOS [Concomitant]
     Active Substance: INSULIN NOS
  3. SOTALOL [Concomitant]
     Active Substance: SOTALOL
  4. PRADAXA [Concomitant]
     Active Substance: DABIGATRAN ETEXILATE MESYLATE
  5. VITAMINS [Concomitant]
     Active Substance: VITAMINS
  6. aspirin 85 mg [Concomitant]

REACTIONS (10)
  - Heart rate irregular [None]
  - Heart rate increased [None]
  - Urine output increased [None]
  - Abdominal pain lower [None]
  - Bladder pain [None]
  - Dizziness [None]
  - Decreased appetite [None]
  - Headache [None]
  - Near death experience [None]
  - Malaise [None]

NARRATIVE: CASE EVENT DATE: 20230419
